FAERS Safety Report 9384362 (Version 3)
Quarter: 2013Q3

REPORT INFORMATION
  Report Type: Report from Study
  Country: ZA (occurrence: ZA)
  Receive Date: 20130705
  Receipt Date: 20130717
  Transmission Date: 20140515
  Serious: Yes (Hospitalization)
  Sender: FDA-Public Use
  Company Number: PHHY2013ZA069869

PATIENT
  Age: 70 Year
  Sex: Female

DRUGS (1)
  1. ACLASTA [Suspect]
     Indication: OSTEOPOROSIS
     Dosage: 5MG/100ML ONCE A YEAR
     Route: 042
     Dates: start: 20130620

REACTIONS (6)
  - Migraine [Recovered/Resolved]
  - Headache [Unknown]
  - Petit mal epilepsy [Unknown]
  - Insomnia [Unknown]
  - Influenza like illness [Unknown]
  - Drug hypersensitivity [Unknown]
